FAERS Safety Report 9731373 (Version 1)
Quarter: 2013Q4

REPORT INFORMATION
  Report Type: Spontaneous
  Country: US (occurrence: US)
  Receive Date: 20131203
  Receipt Date: 20131203
  Transmission Date: 20140711
  Serious: No
  Sender: FDA-Public Use
  Company Number: US-NOVEN-13US007793

PATIENT
  Age: 67 Year
  Sex: Female

DRUGS (6)
  1. FENTANYL [Suspect]
     Indication: BACK PAIN
     Dosage: 50 UG/HR, UNK
     Route: 062
     Dates: start: 201309, end: 201309
  2. ADVAIR [Concomitant]
     Indication: CHRONIC OBSTRUCTIVE PULMONARY DISEASE
     Dosage: UNK
     Route: 055
  3. SPIRIVA [Concomitant]
     Indication: CHRONIC OBSTRUCTIVE PULMONARY DISEASE
     Dosage: UNK
  4. COUMADIN                           /00014802/ [Concomitant]
     Dosage: UNK
     Route: 048
  5. Z-PAK [Concomitant]
     Dosage: UNK
     Route: 048
  6. MULTIVITAMIN                       /00097801/ [Concomitant]
     Dosage: UNK
     Route: 048

REACTIONS (3)
  - Anxiety [Recovered/Resolved]
  - Inadequate analgesia [Recovered/Resolved]
  - Product quality issue [Recovered/Resolved]
